FAERS Safety Report 12185328 (Version 4)
Quarter: 2017Q2

REPORT INFORMATION
  Report Type: Report from Study
  Country: US (occurrence: US)
  Receive Date: 20160316
  Receipt Date: 20170418
  Transmission Date: 20170830
  Serious: Yes (Hospitalization)
  Sender: FDA-Public Use
  Company Number: US-ACTELION-A-NJ2016-132764

PATIENT
  Age: 84 Year
  Sex: Male
  Weight: 115.65 kg

DRUGS (1)
  1. TRACLEER [Suspect]
     Active Substance: BOSENTAN
     Indication: PULMONARY HYPERTENSION
     Dosage: 125 MG, BID
     Route: 048
     Dates: start: 1997

REACTIONS (9)
  - Atrioventricular block complete [Unknown]
  - Condition aggravated [Unknown]
  - Cardiac failure congestive [Unknown]
  - Dyspnoea [Unknown]
  - Pericardial effusion [Unknown]
  - Cataract operation [Unknown]
  - Arteriosclerosis [Unknown]
  - Cardiac pacemaker insertion [Unknown]
  - Fluid overload [Unknown]
